FAERS Safety Report 25817684 (Version 1)
Quarter: 2025Q3

REPORT INFORMATION
  Report Type: Spontaneous
  Country: CN (occurrence: CN)
  Receive Date: 20250918
  Receipt Date: 20250918
  Transmission Date: 20251021
  Serious: Yes (Other)
  Sender: PFIZER
  Company Number: CN-PFIZER INC-PV202400084554

PATIENT
  Age: 15 Year
  Sex: Male

DRUGS (3)
  1. XYNTHA [Suspect]
     Active Substance: MOROCTOCOG ALFA
     Indication: Factor VIII deficiency
     Dosage: 1000 IU, 2X/DAY
     Route: 042
     Dates: start: 20240528
  2. XYNTHA [Suspect]
     Active Substance: MOROCTOCOG ALFA
     Dosage: 1000 IU, 1X/DAY
     Route: 042
     Dates: start: 20240606
  3. XYNTHA [Suspect]
     Active Substance: MOROCTOCOG ALFA
     Dosage: 2000 IU, 2X/DAY
     Route: 042
     Dates: start: 20240627

REACTIONS (6)
  - Haemarthrosis [Unknown]
  - Joint swelling [Unknown]
  - Arthralgia [Unknown]
  - Diarrhoea [Unknown]
  - Abdominal pain [Unknown]
  - Oropharyngeal pain [Unknown]
